FAERS Safety Report 8513578-3 (Version None)
Quarter: 2012Q3

REPORT INFORMATION
  Report Type: 
  Country: None (occurrence: None)
  Receive Date: 20120717
  Receipt Date: 20120704
  Transmission Date: 20120928
  Serious: No
  Sender: FDA-Public Use
  Company Number: US-PFIZER INC-2012160826

PATIENT
  Age: 16 Year
  Sex: Male
  Weight: 79.365 kg

DRUGS (3)
  1. LORATADINE [Concomitant]
     Indication: SEASONAL ALLERGY
     Dosage: UNK
  2. ADVIL LIQUI-GELS [Suspect]
     Indication: ENDODONTIC PROCEDURE
     Dosage: 200 MG, EVERY 6 HOURS
     Route: 048
     Dates: start: 20120601, end: 20120101
  3. BENADRYL [Suspect]
     Dosage: UNK

REACTIONS (3)
  - URTICARIA [None]
  - FATIGUE [None]
  - SWELLING [None]
